FAERS Safety Report 8106542 (Version 2)
Quarter: 2013Q3

REPORT INFORMATION
  Report Type: Spontaneous
  Country: US (occurrence: US)
  Receive Date: 20110825
  Receipt Date: 20130715
  Transmission Date: 20140515
  Serious: Yes (Hospitalization)
  Sender: FDA-Public Use
  Company Number: US-BAYER-2011-074993

PATIENT
  Age: 20 Year
  Sex: Female
  Weight: 74.83 kg

DRUGS (1)
  1. OCELLA [Suspect]
     Dosage: UNK
     Dates: start: 2003, end: 2003

REACTIONS (2)
  - Thrombosis [None]
  - Injury [None]
